FAERS Safety Report 7365449-6 (Version None)
Quarter: 2011Q1

REPORT INFORMATION
  Report Type: 
  Country: None (occurrence: None)
  Receive Date: 20110317
  Receipt Date: 20110317
  Transmission Date: 20110831
  Serious: No
  Sender: FDA-Public Use
  Company Number: None

PATIENT
  Sex: Male
  Weight: 51.8 kg

DRUGS (2)
  1. HIZENTRA [Suspect]
     Dosage: 2 GRAMS WEEKLY SQ
     Route: 058
     Dates: start: 20100621
  2. HIZENTRA [Suspect]
     Indication: IMMUNOGLOBULINS DECREASED
     Dosage: 8 GRAMS WEEKLY SQ
     Route: 058
     Dates: start: 20100621

REACTIONS (5)
  - INFUSION SITE PAIN [None]
  - INFUSION SITE HAEMATOMA [None]
  - INFUSION SITE WARMTH [None]
  - INFUSION SITE SWELLING [None]
  - INFUSION SITE ERYTHEMA [None]
